FAERS Safety Report 4630144-0 (Version None)
Quarter: 2005Q2

REPORT INFORMATION
  Report Type: 
  Country: None (occurrence: None)
  Receive Date: 20050408
  Receipt Date: 20050328
  Transmission Date: 20051028
  Serious: Yes (Other)
  Sender: FDA-Public Use
  Company Number: PHBS2005CA04461

PATIENT
  Sex: Female

DRUGS (1)
  1. NEORAL [Suspect]
     Indication: PSORIASIS
     Dosage: 200 MG, BID
     Route: 048
     Dates: start: 20050323, end: 20050328

REACTIONS (5)
  - BLOOD PRESSURE INCREASED [None]
  - HEART RATE INCREASED [None]
  - OEDEMA PERIPHERAL [None]
  - SENSATION OF HEAVINESS [None]
  - SWELLING FACE [None]
